FAERS Safety Report 8410137-8 (Version None)
Quarter: 2012Q2

REPORT INFORMATION
  Report Type: 
  Country: None (occurrence: None)
  Receive Date: 20120605
  Receipt Date: 20120530
  Transmission Date: 20120825
  Serious: No
  Sender: FDA-Public Use
  Company Number: US-PFIZER INC-2012130732

PATIENT
  Sex: Male
  Weight: 94 kg

DRUGS (4)
  1. NORVASC [Suspect]
     Dosage: UNK
     Route: 048
  2. TOPROL-XL [Concomitant]
     Indication: HYPERTENSION
     Dosage: 50 MG, UNK
  3. LISINOPRIL [Concomitant]
     Indication: HYPERTENSION
     Dosage: UNK
  4. NORVASC [Suspect]
     Indication: HYPERTENSION
     Dosage: 10 MG, 1X/DAY
     Route: 048

REACTIONS (2)
  - HYPERSENSITIVITY [None]
  - BLOOD BLISTER [None]
